FAERS Safety Report 5402607-1 (Version None)
Quarter: 2007Q3

REPORT INFORMATION
  Report Type: 
  Country: None (occurrence: None)
  Receive Date: 20070801
  Receipt Date: 20070219
  Transmission Date: 20080115
  Serious: No
  Sender: FDA-Public Use
  Company Number: A0640091A

PATIENT
  Age: 53 Year
  Sex: Male

DRUGS (2)
  1. IMITREX [Suspect]
     Indication: MIGRAINE
     Route: 048
     Dates: start: 20030101
  2. UNSPECIFIED MEDICATION [Concomitant]

REACTIONS (1)
  - DRUG INEFFECTIVE [None]
